FAERS Safety Report 7911157-X (Version None)
Quarter: 2011Q4

REPORT INFORMATION
  Report Type: 
  Country: None (occurrence: None)
  Receive Date: 20111114
  Receipt Date: 20111102
  Transmission Date: 20120403
  Serious: Yes (Life-Threatening, Hospitalization, Other)
  Sender: FDA-Public Use
  Company Number: CA-JNJFOC-20111103273

PATIENT
  Sex: Male
  Weight: 150 kg

DRUGS (6)
  1. METOPROLOL [Concomitant]
     Route: 048
  2. LYDERM 0.05% [Concomitant]
  3. AVAPRO [Concomitant]
     Route: 048
  4. ASPIRIN [Concomitant]
     Route: 048
  5. REMICADE [Suspect]
     Indication: PSORIASIS
     Route: 042
     Dates: start: 20111102
  6. CHOLESTYRAMINE [Concomitant]

REACTIONS (9)
  - CYANOSIS [None]
  - DYSPEPSIA [None]
  - PAIN [None]
  - PALLOR [None]
  - CHEST PAIN [None]
  - INFUSION RELATED REACTION [None]
  - BRADYCARDIA [None]
  - HYPERHIDROSIS [None]
  - HYPOTENSION [None]
